FAERS Safety Report 8037087-3 (Version None)
Quarter: 2012Q1

REPORT INFORMATION
  Report Type: 
  Country: None (occurrence: None)
  Receive Date: 20120111
  Receipt Date: 20120109
  Transmission Date: 20120608
  Serious: Yes (Hospitalization)
  Sender: FDA-Public Use
  Company Number: US-GLAXOSMITHKLINE-A0960591A

PATIENT
  Age: 69 Year
  Sex: Female

DRUGS (3)
  1. ADVAIR DISKUS 100/50 [Suspect]
     Indication: CHRONIC OBSTRUCTIVE PULMONARY DISEASE
     Dosage: 1PUFF TWICE PER DAY
     Route: 055
  2. VENTOLIN [Suspect]
     Indication: BRONCHOSPASM
     Dosage: 1PUFF AS REQUIRED
     Route: 055
  3. SPIRIVA [Concomitant]

REACTIONS (3)
  - PNEUMOTHORAX [None]
  - PROCEDURAL COMPLICATION [None]
  - LUNG DISORDER [None]
